FAERS Safety Report 17666551 (Version 1)
Quarter: 2020Q2

REPORT INFORMATION
  Report Type: Spontaneous
  Country: US (occurrence: US)
  Receive Date: 20200414
  Receipt Date: 20200414
  Transmission Date: 20200713
  Serious: No
  Sender: FDA-Public Use
  Company Number: None

PATIENT
  Age: 59 Year
  Sex: Male
  Weight: 88.11 kg

DRUGS (13)
  1. VITAMIN B12 [Concomitant]
     Active Substance: CYANOCOBALAMIN
     Dates: end: 20200414
  2. FERROUS SULFATE. [Concomitant]
     Active Substance: FERROUS SULFATE
     Dates: end: 20200414
  3. MULTI VIT [Concomitant]
     Active Substance: VITAMINS
     Dates: end: 20200414
  4. VITAMIN [Concomitant]
     Active Substance: VITAMINS
     Dates: end: 20200414
  5. GABAPENTIN. [Concomitant]
     Active Substance: GABAPENTIN
     Dates: end: 20200414
  6. FISH OIL [Concomitant]
     Active Substance: FISH OIL
     Dates: end: 20200414
  7. TRAMADOL. [Concomitant]
     Active Substance: TRAMADOL
     Dates: end: 20200414
  8. MEKTOVI [Suspect]
     Active Substance: BINIMETINIB
     Indication: MALIGNANT MELANOMA
     Route: 048
     Dates: start: 20200320, end: 20200414
  9. MIDODRINE [Concomitant]
     Active Substance: MIDODRINE
     Dates: end: 20200414
  10. ZOFRAN [Concomitant]
     Active Substance: ONDANSETRON HYDROCHLORIDE
     Dates: end: 20200414
  11. BRAFTOVI [Suspect]
     Active Substance: ENCORAFENIB
     Indication: MALIGNANT MELANOMA
     Route: 048
     Dates: start: 20200320, end: 20200414
  12. TYLENOL [Concomitant]
     Active Substance: ACETAMINOPHEN
     Dates: end: 20200414
  13. OXYCONTIN [Concomitant]
     Active Substance: OXYCODONE HYDROCHLORIDE
     Dates: end: 20200414

REACTIONS (1)
  - Death [None]

NARRATIVE: CASE EVENT DATE: 20200414
